FAERS Safety Report 24055604 (Version 1)
Quarter: 2024Q3

REPORT INFORMATION
  Report Type: Spontaneous
  Country: ES (occurrence: ES)
  Receive Date: 20240705
  Receipt Date: 20240705
  Transmission Date: 20241016
  Serious: Yes (Other)
  Sender: FRESENIUS KABI
  Company Number: ES-ABBVIE-5799782

PATIENT
  Age: 72 Year
  Sex: Female

DRUGS (6)
  1. POSACONAZOLE [Suspect]
     Active Substance: POSACONAZOLE
     Indication: Product used for unknown indication
     Route: 065
     Dates: start: 20240608
  2. VENETOCLAX [Suspect]
     Active Substance: VENETOCLAX
     Indication: Essential thrombocythaemia
     Dosage: LAST ADMIN DATE: JUN 2024?FILM-COATED TABLET
     Route: 048
     Dates: start: 20240603
  3. VENETOCLAX [Suspect]
     Active Substance: VENETOCLAX
     Indication: Acute myeloid leukaemia
  4. AZACITIDINE [Suspect]
     Active Substance: AZACITIDINE
     Indication: Acute myeloid leukaemia
     Dosage: LAST ADMIN DATE : JUN 2024?FILM-COATED TABLET
     Route: 065
     Dates: start: 20240603
  5. AZACITIDINE [Suspect]
     Active Substance: AZACITIDINE
     Indication: Essential thrombocythaemia
  6. HYDREA [Concomitant]
     Active Substance: HYDROXYUREA
     Indication: Essential thrombocythaemia

REACTIONS (1)
  - Vasculitis [Unknown]

NARRATIVE: CASE EVENT DATE: 20240608
